FAERS Safety Report 7921295-3 (Version None)
Quarter: 2011Q4

REPORT INFORMATION
  Report Type: 
  Country: None (occurrence: None)
  Receive Date: 20111117
  Receipt Date: 20111107
  Transmission Date: 20120403
  Serious: Yes (Hospitalization)
  Sender: FDA-Public Use
  Company Number: US-BAYER-2011-020445

PATIENT
  Age: 24 Year
  Sex: Female
  Weight: 92.517 kg

DRUGS (4)
  1. YAZ [Suspect]
     Indication: ACNE
  2. NSAID'S [Concomitant]
     Dosage: UNK
     Dates: start: 20060101, end: 20070101
  3. AZITHROMYCIN [Concomitant]
     Dosage: UNK UNK, QD
     Dates: start: 20071008, end: 20071013
  4. YAZ [Suspect]
     Indication: CONTRACEPTION
     Dosage: UNK
     Route: 048
     Dates: start: 20070501, end: 20071201

REACTIONS (8)
  - INJURY [None]
  - EMOTIONAL DISTRESS [None]
  - CHOLELITHIASIS [None]
  - ABDOMINAL PAIN UPPER [None]
  - ANXIETY [None]
  - PAIN [None]
  - CHOLECYSTITIS [None]
  - GALLBLADDER DISORDER [None]
